FAERS Safety Report 24683481 (Version 1)
Quarter: 2024Q4

REPORT INFORMATION
  Report Type: Spontaneous
  Country: CN (occurrence: CN)
  Receive Date: 20241201
  Receipt Date: 20241201
  Transmission Date: 20250114
  Serious: Yes (Other)
  Sender: NOVO NORDISK
  Company Number: None

PATIENT
  Age: 56 Year
  Sex: Female
  Weight: 52 kg

DRUGS (4)
  1. INSULIN ASPART\INSULIN DEGLUDEC [Suspect]
     Active Substance: INSULIN ASPART\INSULIN DEGLUDEC
     Indication: Type 2 diabetes mellitus
     Dosage: 30.000IU BEFORE DINNER,QD
     Route: 058
     Dates: start: 20241110, end: 20241111
  2. INSULIN ASPART\INSULIN DEGLUDEC [Suspect]
     Active Substance: INSULIN ASPART\INSULIN DEGLUDEC
     Dosage: 24IU BEFORE DINNER,QD(DOSE DECREASED)
     Route: 058
     Dates: start: 20241112
  3. INSULIN LISPRO [Suspect]
     Active Substance: INSULIN LISPRO
     Indication: Type 2 diabetes mellitus
     Dosage: 28 IU, QD(12 IU IN THE MORNING AND 16 IU IN THE MIDDAY, BID  )
     Route: 058
     Dates: start: 20241110, end: 20241111
  4. INSULIN LISPRO [Suspect]
     Active Substance: INSULIN LISPRO
     Dosage: 14 IU, QD(6 IU IN THE MORNING AND 8 IU IN THE MIDDAY, BID )
     Route: 058
     Dates: start: 20241112

REACTIONS (2)
  - Asthenia [Recovering/Resolving]
  - Hypoglycaemia [Recovering/Resolving]

NARRATIVE: CASE EVENT DATE: 20241112
